FAERS Safety Report 15641433 (Version 3)
Quarter: 2020Q4

REPORT INFORMATION
  Report Type: Spontaneous
  Country: CA (occurrence: CA)
  Receive Date: 20181120
  Receipt Date: 20201124
  Transmission Date: 20210113
  Serious: Yes (Hospitalization)
  Sender: FDA-Public Use
  Company Number: CA-JNJFOC-20181115972

PATIENT
  Age: 62 Year
  Sex: Female

DRUGS (14)
  1. PAROXETINE HYDROCHLORIDE. [Suspect]
     Active Substance: PAROXETINE HYDROCHLORIDE
     Indication: PRODUCT USED FOR UNKNOWN INDICATION
     Route: 048
  2. OXYCONTIN [Concomitant]
     Active Substance: OXYCODONE HYDROCHLORIDE
     Indication: ANALGESIC THERAPY
     Dosage: START PERIOD: 9 DAYS
     Route: 048
     Dates: start: 20000625, end: 20000704
  3. MEVACOR [Concomitant]
     Active Substance: LOVASTATIN
     Indication: HYPERCHOLESTEROLAEMIA
     Route: 048
     Dates: start: 1998
  4. PAXIL [Suspect]
     Active Substance: PAROXETINE HYDROCHLORIDE
     Indication: DEPRESSION
     Dosage: 30 MG, 1 EVERY 1 DAYS?START PERIOD: 320 DAYS
     Route: 048
     Dates: start: 19990819, end: 20000707
  5. FLUVOXAMINE [Concomitant]
     Active Substance: FLUVOXAMINE
     Indication: PRODUCT USED FOR UNKNOWN INDICATION
     Route: 065
  6. FLUOXETINE [Concomitant]
     Active Substance: FLUOXETINE HYDROCHLORIDE
     Indication: PRODUCT USED FOR UNKNOWN INDICATION
     Route: 065
  7. EMPRACET                           /00020001/ [Concomitant]
     Active Substance: ACETAMINOPHEN
     Indication: ANALGESIC THERAPY
     Dosage: START PERIOD: 19 DAYS.
     Route: 048
     Dates: start: 20000615
  8. OXAZEPAM. [Concomitant]
     Active Substance: OXAZEPAM
     Indication: PRODUCT USED FOR UNKNOWN INDICATION
     Route: 048
  9. RIVOTRIL [Concomitant]
     Active Substance: CLONAZEPAM
     Indication: ANXIETY
     Route: 048
     Dates: start: 1998
  10. MOTRIN [Suspect]
     Active Substance: IBUPROFEN
     Indication: BACK PAIN
     Dosage: 600 MG, 3 EVERY 1 DAYS
     Route: 048
     Dates: start: 1998, end: 20000704
  11. PREPULSID [Concomitant]
     Active Substance: CISAPRIDE
     Indication: PRODUCT USED FOR UNKNOWN INDICATION
     Route: 048
  12. VIOXX [Concomitant]
     Active Substance: ROFECOXIB
     Indication: ANALGESIC THERAPY
     Dosage: START PERIOD: 19 DAYS?LAST PERIOD: 9 DAYS
     Route: 048
     Dates: start: 20000615, end: 20000625
  13. SERAX [Concomitant]
     Active Substance: OXAZEPAM
     Indication: SOMNOLENCE
     Route: 048
     Dates: start: 1998
  14. HISTANTIL [Suspect]
     Active Substance: PROMETHAZINE HYDROCHLORIDE
     Indication: INSOMNIA
     Dosage: 50 MG, 1 EVERY 1 DAY?START PERIOD: 288 DAYS
     Route: 048
     Dates: start: 19990920, end: 20000704

REACTIONS (4)
  - Pain in extremity [Recovered/Resolved]
  - Vasculitis [Recovered/Resolved]
  - Oedema peripheral [Recovered/Resolved]
  - Purpura [Recovered/Resolved]

NARRATIVE: CASE EVENT DATE: 20000704
